FAERS Safety Report 7720101-X (Version None)
Quarter: 2011Q3

REPORT INFORMATION
  Report Type: 
  Country: None (occurrence: None)
  Receive Date: 20110824
  Receipt Date: 20110812
  Transmission Date: 20111222
  Serious: Yes (Hospitalization, Other)
  Sender: FDA-Public Use
  Company Number: EU-2011-10133

PATIENT
  Sex: Male
  Weight: 92 kg

DRUGS (17)
  1. METOCLOPRAMIDE HCL [Concomitant]
  2. SAMSCA [Suspect]
     Indication: HYPONATRAEMIA
     Dosage: 15 MG MILLIGRAM(S), DAILY DOSE, ORAL, 30 MG MILLIGRAM(S), DAILY DOSE, ORAL
     Route: 048
     Dates: start: 20110620, end: 20110717
  3. SAMSCA [Suspect]
     Indication: HYPONATRAEMIA
     Dosage: 15 MG MILLIGRAM(S), DAILY DOSE, ORAL, 30 MG MILLIGRAM(S), DAILY DOSE, ORAL
     Route: 048
     Dates: start: 20110603, end: 20110620
  4. SAMSCA [Suspect]
     Indication: HYPONATRAEMIA
     Dosage: 15 MG MILLIGRAM(S), DAILY DOSE, ORAL, 30 MG MILLIGRAM(S), DAILY DOSE, ORAL
     Route: 048
     Dates: start: 20110717
  5. RAMIPRIL [Concomitant]
  6. MEROPENEM [Concomitant]
  7. DEXAMETHASONE [Concomitant]
  8. ASPIRIN [Concomitant]
  9. BISOPROLOL FUMARATE [Concomitant]
  10. FILGRASTIM (FILGRASTIM) [Concomitant]
  11. SIMVASTATIN [Concomitant]
  12. OMEPRAZOLE [Concomitant]
  13. DIHYDROCODEINE BITARTRATE INJ [Concomitant]
  14. ENSURE (NUTRIENTS NOS) [Concomitant]
  15. POTASSIUM CHLORIDE [Concomitant]
  16. TOPOTECAN [Suspect]
     Indication: CHEMOTHERAPY
     Dosage: 4.25 MG MILLIGRAM(S), DAILY DOSE, ORAL
     Route: 048
     Dates: start: 20110705, end: 20110710
  17. CYCLIZINE (CYCLIZINE) [Concomitant]

REACTIONS (6)
  - VOMITING [None]
  - HYPOPHAGIA [None]
  - NEUTROPENIC SEPSIS [None]
  - DRUG INEFFECTIVE [None]
  - DEHYDRATION [None]
  - HYPONATRAEMIA [None]
